FAERS Safety Report 17083468 (Version 2)
Quarter: 2020Q1

REPORT INFORMATION
  Report Type: Spontaneous
  Country: US (occurrence: US)
  Receive Date: 20191127
  Receipt Date: 20200108
  Transmission Date: 20200409
  Serious: No
  Sender: FDA-Public Use
  Company Number: US-ASTRAZENECA-2019SF55831

PATIENT
  Sex: Female

DRUGS (3)
  1. BYDUREON BCISE [Suspect]
     Active Substance: EXENATIDE
     Indication: DIABETES MELLITUS
     Dosage: ONCE A WEEK
     Route: 065
  2. GLYPIZIDE [Concomitant]
     Active Substance: GLIPIZIDE
     Indication: DIABETES MELLITUS
  3. METFORMIN [Concomitant]
     Active Substance: METFORMIN HYDROCHLORIDE
     Indication: DIABETES MELLITUS

REACTIONS (7)
  - Drug delivery system malfunction [Unknown]
  - Mass [Unknown]
  - Device leakage [Unknown]
  - Incorrect dose administered by device [Unknown]
  - Nodule [Unknown]
  - Product dose omission [Unknown]
  - Rash [Unknown]
